FAERS Safety Report 15773268 (Version 1)
Quarter: 2018Q4

REPORT INFORMATION
  Report Type: Spontaneous
  Country: US (occurrence: US)
  Receive Date: 20181228
  Receipt Date: 20181228
  Transmission Date: 20190205
  Serious: Yes (Other)
  Sender: FDA-Public Use
  Company Number: US-MYLANLABS-2018M1095259

PATIENT
  Age: 38 Year
  Sex: Female

DRUGS (2)
  1. PREDNISONE. [Suspect]
     Active Substance: PREDNISONE
     Indication: EYE DISORDER
  2. PREDNISONE. [Suspect]
     Active Substance: PREDNISONE
     Indication: EYE DISORDER
     Route: 065

REACTIONS (3)
  - Symblepharon [Unknown]
  - Ophthalmic herpes simplex [Recovered/Resolved]
  - Ulcerative keratitis [Unknown]
